FAERS Safety Report 12089116 (Version 1)
Quarter: 2016Q1

REPORT INFORMATION
  Report Type: Spontaneous
  Country: GB (occurrence: GB)
  Receive Date: 20160218
  Receipt Date: 20160218
  Transmission Date: 20160526
  Serious: Yes (Hospitalization)
  Sender: FDA-Public Use
  Company Number: GB-JNJFOC-20160211439

PATIENT
  Sex: Male

DRUGS (1)
  1. SIMPONI [Suspect]
     Active Substance: GOLIMUMAB
     Indication: PRODUCT USED FOR UNKNOWN INDICATION
     Route: 058
     Dates: end: 201509

REACTIONS (4)
  - Kidney infection [Unknown]
  - Urinary retention [Unknown]
  - Parkinson^s disease [Unknown]
  - Hypotension [Unknown]

NARRATIVE: CASE EVENT DATE: 2015
